FAERS Safety Report 11038431 (Version 1)
Quarter: 2015Q2

REPORT INFORMATION
  Report Type: Spontaneous
  Country: TR (occurrence: TR)
  Receive Date: 20150416
  Receipt Date: 20150416
  Transmission Date: 20150821
  Serious: Yes (Hospitalization)
  Sender: FDA-Public Use
  Company Number: TR-ELI_LILLY_AND_COMPANY-TR201504003039

PATIENT
  Age: 10 Year
  Sex: Female

DRUGS (3)
  1. FLUOXETINE HYDROCHLORIDE. [Suspect]
     Active Substance: FLUOXETINE HYDROCHLORIDE
     Indication: ANHEDONIA
     Dosage: 20 MG, QD
     Route: 065
  2. FLUOXETINE HYDROCHLORIDE. [Suspect]
     Active Substance: FLUOXETINE HYDROCHLORIDE
     Indication: DEPRESSED MOOD
     Dosage: 10 MG, QD
     Route: 065
  3. FLUOXETINE HYDROCHLORIDE. [Suspect]
     Active Substance: FLUOXETINE HYDROCHLORIDE
     Indication: EDUCATIONAL PROBLEM

REACTIONS (3)
  - Rash [Recovered/Resolved]
  - Muscle spasms [Recovered/Resolved]
  - Back pain [Recovered/Resolved]
